FAERS Safety Report 5133296-1 (Version None)
Quarter: 2006Q4

REPORT INFORMATION
  Report Type: 
  Country: None (occurrence: None)
  Receive Date: 20060831
  Receipt Date: 20060606
  Transmission Date: 20070319
  Serious: No
  Sender: FDA-Public Use
  Company Number: 2006-BP-03184BP

PATIENT
  Age: 69 Year
  Sex: Male
  Weight: 62.6 kg

DRUGS (3)
  1. SPIRIVA [Suspect]
     Indication: CHRONIC OBSTRUCTIVE PULMONARY DISEASE
     Dosage: 18 MCG (18 MCG,1 PUFF QD),IH
     Dates: start: 20060117
  2. SPIRIVA [Suspect]
  3. ADVAIR DISKUS 100/50 [Concomitant]

REACTIONS (1)
  - CHILLS [None]
